FAERS Safety Report 7031514-6 (Version None)
Quarter: 2010Q4

REPORT INFORMATION
  Report Type: 
  Country: None (occurrence: None)
  Receive Date: 20101006
  Receipt Date: 20101006
  Transmission Date: 20110411
  Serious: No
  Sender: FDA-Public Use
  Company Number: None

PATIENT
  Age: 60 Year
  Sex: Female
  Weight: 82.1011 kg

DRUGS (1)
  1. ACTONEL [Suspect]
     Indication: OSTEOPOROSIS
     Dosage: 150 MG ONCE A MONTH PO
     Route: 048
     Dates: start: 20100901, end: 20101001

REACTIONS (3)
  - BACK PAIN [None]
  - MUSCULOSKELETAL CHEST PAIN [None]
  - PAIN [None]
